FAERS Safety Report 6962888-X (Version None)
Quarter: 2010Q3

REPORT INFORMATION
  Report Type: 
  Country: None (occurrence: None)
  Receive Date: 20100902
  Receipt Date: 20100820
  Transmission Date: 20110219
  Serious: Yes (Death)
  Sender: FDA-Public Use
  Company Number: JP-PFIZER INC-2010099314

PATIENT
  Age: 63 Year
  Sex: Female

DRUGS (5)
  1. LYRICA [Suspect]
     Indication: POST HERPETIC NEURALGIA
     Dosage: 25 MG, 1X/DAY
     Route: 048
     Dates: start: 20100731
  2. TAKEPRON [Concomitant]
     Indication: REFLUX OESOPHAGITIS
     Dosage: 15 MG, 1X/DAY
     Route: 048
     Dates: start: 20100429
  3. METHYCOBAL [Concomitant]
     Indication: POST HERPETIC NEURALGIA
     Dosage: 0.5 MG, 3X/DAY
     Route: 048
     Dates: start: 20100713
  4. DEPAS [Concomitant]
     Indication: INSOMNIA
     Dosage: 0.5 MG, 1X/DAY
     Route: 048
     Dates: start: 20100713
  5. NEUROTROPIN [Concomitant]
     Indication: POST HERPETIC NEURALGIA
     Dosage: 3 ML, UNK
     Route: 042
     Dates: start: 20100617

REACTIONS (1)
  - CARDIAC FAILURE ACUTE [None]
